FAERS Safety Report 23989957 (Version 4)
Quarter: 2024Q3

REPORT INFORMATION
  Report Type: Spontaneous
  Country: CH (occurrence: CH)
  Receive Date: 20240619
  Receipt Date: 20240830
  Transmission Date: 20241016
  Serious: Yes (Other)
  Sender: PFIZER
  Company Number: CH-PFIZER INC-PV202400079227

PATIENT
  Sex: Male

DRUGS (1)
  1. ELRANATAMAB [Suspect]
     Active Substance: ELRANATAMAB
     Dosage: UNK

REACTIONS (3)
  - Abnormal loss of weight [Unknown]
  - Scleroderma renal crisis [Recovered/Resolved]
  - Pyrexia [Recovered/Resolved]
